FAERS Safety Report 5152362-8 (Version None)
Quarter: 2006Q4

REPORT INFORMATION
  Report Type: 
  Country: None (occurrence: None)
  Receive Date: 20061116
  Receipt Date: 20061027
  Transmission Date: 20070319
  Serious: Yes (Life-Threatening, Other)
  Sender: FDA-Public Use
  Company Number: US-ELI_LILLY_AND_COMPANY-US200610005203

PATIENT
  Age: 51 Year
  Sex: Female
  Weight: 61.224 kg

DRUGS (10)
  1. CYMBALTA [Suspect]
     Indication: PAIN
     Dosage: 150 MG, UNK
     Route: 050
     Dates: start: 20060426, end: 20060426
  2. IMITREX [Concomitant]
  3. RIFAMPIN [Concomitant]
  4. VANCOMYCIN [Concomitant]
  5. REMERON [Concomitant]
     Indication: DEPRESSION
  6. NEXIUM [Concomitant]
  7. PHENERGAN [Concomitant]
  8. CALCIUM CARBONATE [Concomitant]
  9. HEPARIN SODIUM INJECTION [Concomitant]
  10. BACTRIM [Concomitant]

REACTIONS (7)
  - BLINDNESS [None]
  - COGNITIVE DISORDER [None]
  - FEELING ABNORMAL [None]
  - FEELING HOT [None]
  - PARAESTHESIA [None]
  - PRESCRIBED OVERDOSE [None]
  - SEROTONIN SYNDROME [None]
